FAERS Safety Report 14634712 (Version 2)
Quarter: 2018Q1

REPORT INFORMATION
  Report Type: Spontaneous
  Country: US (occurrence: US)
  Receive Date: 20180314
  Receipt Date: 20180316
  Transmission Date: 20180509
  Serious: No
  Sender: FDA-Public Use
  Company Number: US-PFIZER INC-2018105548

PATIENT
  Sex: Female
  Weight: 61 kg

DRUGS (3)
  1. CETIRIZINE HYDROCHLORIDE. [Concomitant]
     Active Substance: CETIRIZINE HYDROCHLORIDE
     Indication: HYPERSENSITIVITY
     Dosage: LITTLE TABLET, ONCE A DAY
     Route: 048
  2. EUCRISA [Suspect]
     Active Substance: CRISABOROLE
     Indication: DRY SKIN
     Dosage: UNK, AS NEEDED
     Route: 061
  3. EUCRISA [Suspect]
     Active Substance: CRISABOROLE
     Indication: DERMATITIS ATOPIC

REACTIONS (1)
  - Burning sensation [Unknown]

NARRATIVE: CASE EVENT DATE: 201802
